FAERS Safety Report 5968398-0 (Version None)
Quarter: 2008Q4

REPORT INFORMATION
  Report Type: 
  Country: None (occurrence: None)
  Receive Date: 20081121
  Receipt Date: 20081121
  Transmission Date: 20090506
  Serious: Yes (Other)
  Sender: FDA-Public Use
  Company Number: None

PATIENT
  Age: 56 Year
  Sex: Female
  Weight: 68.0396 kg

DRUGS (1)
  1. CLINDESSE [Suspect]
     Indication: BACTERIAL INFECTION
     Dosage: ONE TUBE ONCE VAG
     Route: 067
     Dates: start: 20081022, end: 20081022

REACTIONS (5)
  - BURNING SENSATION [None]
  - ECONOMIC PROBLEM [None]
  - INFLAMMATION [None]
  - MALAISE [None]
  - PAIN [None]
